FAERS Safety Report 8197704-4 (Version None)
Quarter: 2012Q1

REPORT INFORMATION
  Report Type: 
  Country: None (occurrence: None)
  Receive Date: 20120309
  Receipt Date: 20120301
  Transmission Date: 20120608
  Serious: Yes (Death)
  Sender: FDA-Public Use
  Company Number: PT-BAXTER-2012BH005247

PATIENT
  Age: 78 Year
  Sex: Male

DRUGS (1)
  1. EXTRANEAL [Suspect]
     Indication: PERITONEAL DIALYSIS
     Route: 033
     Dates: start: 20111101, end: 20120222

REACTIONS (3)
  - DEATH [None]
  - HYPERTENSION [None]
  - MALAISE [None]
